FAERS Safety Report 7476822-X (Version None)
Quarter: 2011Q2

REPORT INFORMATION
  Report Type: 
  Country: None (occurrence: None)
  Receive Date: 20110512
  Receipt Date: 20110429
  Transmission Date: 20111010
  Serious: Yes (Other)
  Sender: FDA-Public Use
  Company Number: US-CELGENEUS-163-21880-11050255

PATIENT
  Age: 66 Year
  Sex: Male

DRUGS (8)
  1. DOXORUBICIN HCL [Suspect]
     Route: 065
  2. CYCLOPHOSPHAMIDE [Concomitant]
     Route: 051
  3. FILGRASTIM [Concomitant]
     Route: 058
  4. REVLIMID [Suspect]
     Route: 048
  5. DEXAMETHASONE [Suspect]
     Route: 065
  6. BORTEZOMIB [Suspect]
     Route: 065
  7. AMIFOSTINE [Concomitant]
     Route: 051
  8. MELPHALAN [Concomitant]
     Route: 051

REACTIONS (1)
  - ACUTE GRAFT VERSUS HOST DISEASE IN INTESTINE [None]
